FAERS Safety Report 15998217 (Version 2)
Quarter: 2019Q1

REPORT INFORMATION
  Report Type: Spontaneous
  Country: RO (occurrence: RO)
  Receive Date: 20190223
  Receipt Date: 20190320
  Transmission Date: 20190418
  Serious: Yes (Hospitalization, Other)
  Sender: FDA-Public Use
  Company Number: RO-ACCORD-108960

PATIENT
  Age: 19 Year
  Sex: Female
  Weight: 45.6 kg

DRUGS (7)
  1. ACUTIL FOSFORO [Concomitant]
     Active Substance: DIETARY SUPPLEMENT
     Dosage: 1 TABLET PER DAY
  2. THIAMINE. [Concomitant]
     Active Substance: THIAMINE
     Dosage: INJECTION FOR TWO WEEKS
  3. SERTRALINE [Suspect]
     Active Substance: SERTRALINE HYDROCHLORIDE
     Indication: ANOREXIA NERVOSA
     Dosage: TWO TABLETS PER DAY
  4. PYRIDOXINE [Concomitant]
     Active Substance: PYRIDOXINE
     Dosage: INJECTION FOR TWO WEEKS
  5. FERRO FOLGAMMA [Concomitant]
     Indication: ANAEMIA
     Dosage: THREE TABLETS PER DAY
  6. MALTOFER [Concomitant]
     Indication: ANAEMIA
     Dosage: TWO TABLETS PER DAY
  7. OLANZAPINE. [Suspect]
     Active Substance: OLANZAPINE
     Indication: DEPRESSION
     Dosage: 1 TABLET PER DAY

REACTIONS (2)
  - Suicide attempt [Unknown]
  - Weight decreased [Recovered/Resolved]
